FAERS Safety Report 9310785 (Version 4)
Quarter: 2013Q3

REPORT INFORMATION
  Report Type: Report from Study
  Country: US (occurrence: US)
  Receive Date: 20130528
  Receipt Date: 20130703
  Transmission Date: 20140515
  Serious: Yes (Hospitalization, Other)
  Sender: FDA-Public Use
  Company Number: US-PFIZER INC-2013161173

PATIENT
  Age: 39 Year
  Sex: Female
  Weight: 77.72 kg

DRUGS (9)
  1. CORDARONE [Suspect]
     Indication: ATRIAL FLUTTER
     Dosage: 200 MG, UNK
     Route: 048
     Dates: start: 20130318
  2. TREPROSTINIL DIETHANOLAMINE [Suspect]
     Indication: PULMONARY ARTERIAL HYPERTENSION
     Dosage: 2.75 MG IN THE MORNING (AM) AND 2.5 MG IN THE EVENING (PM) DAILY
     Route: 048
     Dates: start: 20080312
  3. ESOMEPRAZOLE [Concomitant]
     Indication: DUODENOGASTRIC REFLUX
     Dosage: 20 MG, UNK
     Route: 048
     Dates: start: 20060619
  4. LASIX [Concomitant]
     Indication: DIURETIC THERAPY
     Dosage: 80 MG, 2X/DAY
     Route: 048
     Dates: start: 20051129
  5. LOSARTAN [Concomitant]
     Indication: HYPERTENSION
     Dosage: 25 MG, UNK
     Route: 048
     Dates: start: 201206
  6. METFORMIN [Concomitant]
     Indication: DIABETES MELLITUS
     Dosage: 500 MG, 2X/DAY
     Route: 048
     Dates: start: 20110321
  7. POTASSIUM [Concomitant]
     Indication: SUPPLEMENTATION THERAPY
     Dosage: 50 MG, 2X/DAY
     Route: 048
     Dates: start: 20130403
  8. PREDNISONE [Concomitant]
     Indication: HAEMOLYTIC ANAEMIA
     Dosage: 10 MG, UNK
     Route: 048
     Dates: start: 2009
  9. SPIRONOLACTONE [Concomitant]
     Indication: DIURETIC THERAPY
     Dosage: 25 MG, UNK
     Route: 048
     Dates: start: 20090324

REACTIONS (3)
  - Haematoma [Not Recovered/Not Resolved]
  - International normalised ratio increased [Recovered/Resolved]
  - Renal failure acute [Recovered/Resolved]
